FAERS Safety Report 6049178-7 (Version None)
Quarter: 2009Q1

REPORT INFORMATION
  Report Type: 
  Country: None (occurrence: None)
  Receive Date: 20090123
  Receipt Date: 20090112
  Transmission Date: 20090719
  Serious: Yes (Life-Threatening, Hospitalization)
  Sender: FDA-Public Use
  Company Number: DE-PFIZER INC-2009153861

PATIENT

DRUGS (11)
  1. DOXAZOSIN MESILATE [Suspect]
     Indication: HYPERTENSION
     Dosage: 8 MG, 1X/DAY
     Route: 048
  2. DOXAZOSIN MESILATE [Suspect]
     Dosage: 2MG DAILY
     Route: 048
  3. ISDN - SLOW RELEASE ^CT-ARZNEIMITTEL^ [Suspect]
     Indication: CORONARY ARTERY DISEASE
     Dosage: 20 MG, 2X/DAY
     Route: 048
     Dates: end: 20080531
  4. BISOPROLOL [Suspect]
     Indication: HYPERTENSION
     Dosage: 10 MG, 1X/DAY
     Route: 048
  5. BISOPROLOL [Suspect]
     Dosage: 2.5 MG, 2X/DAY
     Route: 048
  6. ACETYLSALICYLIC ACID [Concomitant]
     Indication: CORONARY ARTERY DISEASE
     Dosage: 100 MG, 1X/DAY
     Route: 048
  7. HYDROCHLOROTHIAZIDE [Concomitant]
     Indication: HYPERTENSION
     Dosage: 25 MG, 1X/DAY
     Route: 048
  8. METFORMIN [Concomitant]
     Indication: TYPE 2 DIABETES MELLITUS
     Dosage: 1000 MG, 1X/DAY
     Route: 048
  9. MODIP ^ASTRA^ [Concomitant]
     Indication: HYPERTENSION
     Dosage: 10 MG, 1X/DAY
  10. RAMIPRIL [Concomitant]
     Indication: HYPERTENSION
     Dosage: 10 MG, 1X/DAY
     Route: 048
  11. SIMVASTATIN [Concomitant]
     Indication: HYPERLIPIDAEMIA
     Dosage: 80 MG, 1X/DAY
     Route: 048

REACTIONS (6)
  - ACTIVATED PARTIAL THROMBOPLASTIN TIME SHORTENED [None]
  - BLOOD CREATININE INCREASED [None]
  - BLOOD UREA INCREASED [None]
  - DEHYDRATION [None]
  - HYPOTENSION [None]
  - SYNCOPE [None]
